FAERS Safety Report 9163231 (Version 2)
Quarter: 2013Q1

REPORT INFORMATION
  Report Type: Spontaneous
  Country: JP (occurrence: None)
  Receive Date: 20130221
  Receipt Date: 20130304
  Transmission Date: 20140127
  Serious: Yes (Life-Threatening)
  Sender: FDA-Public Use
  Company Number: TCI2013A00942

PATIENT
  Age: 77 Year
  Sex: Male

DRUGS (5)
  1. ACTOS (PIOGLITAZONE HYDROCHLORIDE) [Suspect]
     Indication: DIABETES MELLITUS
     Dosage: 30 MG (30 MG, 1 D) PER ORAL
     Route: 048
     Dates: start: 201210, end: 20121217
  2. ATELEC [Suspect]
     Route: 048
     Dates: start: 201210, end: 20121217
  3. AMARYL (GLIMEPIRIDE) [Suspect]
     Route: 048
     Dates: start: 201210, end: 20121217
  4. PLAVIX [Suspect]
     Route: 048
     Dates: start: 201210, end: 20121217
  5. SEIBULE [Suspect]
     Route: 048
     Dates: start: 201210, end: 20121217

REACTIONS (2)
  - Interstitial lung disease [None]
  - Fracture [None]
